FAERS Safety Report 4780549-2 (Version None)
Quarter: 2005Q3

REPORT INFORMATION
  Report Type: 
  Country: None (occurrence: None)
  Receive Date: 20050914
  Receipt Date: 20050427
  Transmission Date: 20060218
  Serious: Yes (Hospitalization)
  Sender: FDA-Public Use
  Company Number: 163-20785-05040395

PATIENT
  Age: 60 Year
  Sex: Male
  Weight: 101 kg

DRUGS (33)
  1. THALOMID [Suspect]
     Indication: MULTIPLE MYELOMA
     Dosage: QD, ORAL; QD, ORAL; 200 MG, QD, ORAL; 100 MG, QD, ORAL
     Route: 048
     Dates: start: 20050121, end: 20050124
  2. THALOMID [Suspect]
     Indication: MULTIPLE MYELOMA
     Dosage: QD, ORAL; QD, ORAL; 200 MG, QD, ORAL; 100 MG, QD, ORAL
     Route: 048
     Dates: start: 20050329, end: 20050421
  3. THALOMID [Suspect]
     Indication: MULTIPLE MYELOMA
     Dosage: QD, ORAL; QD, ORAL; 200 MG, QD, ORAL; 100 MG, QD, ORAL
     Route: 048
     Dates: start: 20041225
  4. THALOMID [Suspect]
     Indication: MULTIPLE MYELOMA
     Dosage: QD, ORAL; QD, ORAL; 200 MG, QD, ORAL; 100 MG, QD, ORAL
     Route: 048
     Dates: start: 20050118
  5. . [Concomitant]
  6. . [Concomitant]
  7. BORTEZOMIB (BORTEZOMIB) [Suspect]
     Indication: MULTIPLE MYELOMA
     Dosage: INTRAVENOUS ; 2 MG, ON DAYS 1, 4, 8, 11, INTRAVENOUS
     Route: 042
     Dates: start: 20050118, end: 20050128
  8. BORTEZOMIB (BORTEZOMIB) [Suspect]
     Indication: MULTIPLE MYELOMA
     Dosage: INTRAVENOUS ; 2 MG, ON DAYS 1, 4, 8, 11, INTRAVENOUS
     Route: 042
     Dates: start: 20041225
  9. DEXAMETHASONE [Suspect]
     Indication: MULTIPLE MYELOMA
     Dosage: QD, ORAL; QD, ORAL; 40 MG, QD, ORAL; 20 MG, QD, ORAL
     Route: 048
     Dates: start: 20050121, end: 20050124
  10. DEXAMETHASONE [Suspect]
     Indication: MULTIPLE MYELOMA
     Dosage: QD, ORAL; QD, ORAL; 40 MG, QD, ORAL; 20 MG, QD, ORAL
     Route: 048
     Dates: start: 20050329, end: 20050401
  11. DEXAMETHASONE [Suspect]
     Indication: MULTIPLE MYELOMA
     Dosage: QD, ORAL; QD, ORAL; 40 MG, QD, ORAL; 20 MG, QD, ORAL
     Route: 048
     Dates: start: 20040118
  12. DEXAMETHASONE [Suspect]
     Indication: MULTIPLE MYELOMA
     Dosage: QD, ORAL; QD, ORAL; 40 MG, QD, ORAL; 20 MG, QD, ORAL
     Route: 048
     Dates: start: 20041225
  13. , [Concomitant]
  14. . [Concomitant]
  15. CISPLATIN [Suspect]
     Indication: MULTIPLE MYELOMA
     Dosage: QD; QD; 20 MG, QD
     Dates: start: 20050121, end: 20050124
  16. CISPLATIN [Suspect]
     Indication: MULTIPLE MYELOMA
     Dosage: QD; QD; 20 MG, QD
     Dates: start: 20041225
  17. CISPLATIN [Suspect]
     Indication: MULTIPLE MYELOMA
     Dosage: QD; QD; 20 MG, QD
     Dates: start: 20050118
  18. . [Concomitant]
  19. ADRIAMYCIN PFS [Suspect]
     Indication: MULTIPLE MYELOMA
     Dosage: QD; QD, 20 MG, QD
     Dates: start: 20050121, end: 20050124
  20. ADRIAMYCIN PFS [Suspect]
     Indication: MULTIPLE MYELOMA
     Dosage: QD; QD, 20 MG, QD
     Dates: start: 20041225
  21. ADRIAMYCIN PFS [Suspect]
     Indication: MULTIPLE MYELOMA
     Dosage: QD; QD, 20 MG, QD
     Dates: start: 20050118
  22. . [Concomitant]
  23. CYCLOPHOSPHAMIDE [Suspect]
     Indication: MULTIPLE MYELOMA
     Dosage: QD, INTRAVENOUS; QD, INTRAVENOUS; 800 MG, QD, INTRAVENOUS
     Route: 042
     Dates: start: 20050121, end: 20050124
  24. CYCLOPHOSPHAMIDE [Suspect]
     Indication: MULTIPLE MYELOMA
     Dosage: QD, INTRAVENOUS; QD, INTRAVENOUS; 800 MG, QD, INTRAVENOUS
     Route: 042
     Dates: start: 20041225
  25. CYCLOPHOSPHAMIDE [Suspect]
     Indication: MULTIPLE MYELOMA
     Dosage: QD, INTRAVENOUS; QD, INTRAVENOUS; 800 MG, QD, INTRAVENOUS
     Route: 042
     Dates: start: 20050118
  26. . [Concomitant]
  27. ETOPOSIDE [Suspect]
     Indication: MULTIPLE MYELOMA
     Dosage: QD, INTRAVENOUS; QD, INTRAVENOUS; 80 MG, QD, INTRAVENOUS
     Route: 042
     Dates: start: 20050121, end: 20050124
  28. ETOPOSIDE [Suspect]
     Indication: MULTIPLE MYELOMA
     Dosage: QD, INTRAVENOUS; QD, INTRAVENOUS; 80 MG, QD, INTRAVENOUS
     Route: 042
     Dates: start: 20041225
  29. ETOPOSIDE [Suspect]
     Indication: MULTIPLE MYELOMA
     Dosage: QD, INTRAVENOUS; QD, INTRAVENOUS; 80 MG, QD, INTRAVENOUS
     Route: 042
     Dates: start: 20050118
  30. . [Concomitant]
  31. MELPHALAN (MELPHALAN ) [Suspect]
     Indication: MULTIPLE MYELOMA
     Dosage: 200MG/M2, QD, INTRAVENOUS ; 400 MG, QD, INTRAVENOUS
     Route: 042
     Dates: start: 20050303, end: 20050303
  32. MELPHALAN (MELPHALAN ) [Suspect]
     Indication: MULTIPLE MYELOMA
     Dosage: 200MG/M2, QD, INTRAVENOUS ; 400 MG, QD, INTRAVENOUS
     Route: 042
     Dates: start: 20050515, end: 20050515
  33. COUMADIN [Suspect]
     Indication: ANTICOAGULANT THERAPY
     Dosage: 5 MG, QD, ORAL
     Route: 048
     Dates: end: 20050421

REACTIONS (10)
  - COUGH [None]
  - DIARRHOEA [None]
  - HEADACHE [None]
  - INTERNATIONAL NORMALISED RATIO INCREASED [None]
  - MUCOSAL INFLAMMATION [None]
  - PANCYTOPENIA [None]
  - PNEUMONIA [None]
  - PNEUMONIA PARAINFLUENZAE VIRAL [None]
  - PYREXIA [None]
  - SUBDURAL HAEMATOMA [None]
